FAERS Safety Report 4532025-X (Version None)
Quarter: 2004Q4

REPORT INFORMATION
  Report Type: 
  Country: None (occurrence: None)
  Receive Date: 20041220
  Receipt Date: 20040211
  Transmission Date: 20050328
  Serious: Yes (Other)
  Sender: FDA-Public Use
  Company Number: GB-GLAXOSMITHKLINE-B0322994A

PATIENT
  Age: 68 Year
  Sex: Female
  Weight: 63 kg

DRUGS (6)
  1. CIMETIDINE [Suspect]
     Indication: DYSPEPSIA
     Dosage: 400MG TWICE PER DAY
     Route: 048
     Dates: start: 20031218, end: 20040204
  2. DIFTAVAX [Concomitant]
     Route: 065
     Dates: start: 20040114, end: 20040114
  3. ASPIRIN [Concomitant]
     Route: 065
     Dates: start: 20040204
  4. RANITIDINE [Concomitant]
     Route: 065
     Dates: start: 20040204
  5. CINNARIZINE [Concomitant]
     Route: 065
     Dates: start: 20040204
  6. PEPTAC [Concomitant]
     Route: 065
     Dates: end: 20031113

REACTIONS (7)
  - BALANCE DISORDER [None]
  - DIFFICULTY IN WALKING [None]
  - DIZZINESS [None]
  - EAR DISCOMFORT [None]
  - MENIERE'S DISEASE [None]
  - TRANSIENT ISCHAEMIC ATTACK [None]
  - VERTIGO [None]
